FAERS Safety Report 7656050-5 (Version None)
Quarter: 2011Q3

REPORT INFORMATION
  Report Type: 
  Country: None (occurrence: None)
  Receive Date: 20110804
  Receipt Date: 20110721
  Transmission Date: 20111222
  Serious: Yes (Hospitalization)
  Sender: FDA-Public Use
  Company Number: US-ELI_LILLY_AND_COMPANY-US201107006843

PATIENT
  Age: 67 Year
  Sex: Male

DRUGS (1)
  1. AXIRON [Suspect]

REACTIONS (1)
  - HYPERSENSITIVITY [None]
